FAERS Safety Report 7264092-7 (Version None)
Quarter: 2011Q1

REPORT INFORMATION
  Report Type: 
  Country: None (occurrence: None)
  Receive Date: 20110130
  Receipt Date: 20101230
  Transmission Date: 20110831
  Serious: No
  Sender: FDA-Public Use
  Company Number: US-ABBOTT-11P-163-0694638-00

PATIENT
  Age: 26 Year
  Sex: Female

DRUGS (3)
  1. HUMIRA [Suspect]
     Indication: CROHN'S DISEASE
     Dosage: 160MG LOADING DOSE
     Dates: start: 20101223, end: 20101223
  2. HUMIRA [Suspect]
  3. HUMIRA [Suspect]
     Dosage: 80 MG LOADING DOSE
     Dates: start: 20110106, end: 20110106

REACTIONS (1)
  - ORAL HERPES [None]
